FAERS Safety Report 21782614 (Version 3)
Quarter: 2023Q1

REPORT INFORMATION
  Report Type: Spontaneous
  Country: US (occurrence: US)
  Receive Date: 20221227
  Receipt Date: 20230104
  Transmission Date: 20230418
  Serious: No
  Sender: FDA-Public Use
  Company Number: US-JNJFOC-20221249217

PATIENT
  Age: 56 Year
  Sex: Female
  Weight: 149.82 kg

DRUGS (2)
  1. STELARA [Suspect]
     Active Substance: USTEKINUMAB
     Indication: Product used for unknown indication
     Route: 058
  2. STELARA [Suspect]
     Active Substance: USTEKINUMAB

REACTIONS (3)
  - Incorrect dose administered [Unknown]
  - Product leakage [Unknown]
  - Accidental exposure to product [Unknown]

NARRATIVE: CASE EVENT DATE: 20221220
